FAERS Safety Report 7854298 (Version 2)
Quarter: 2013Q3

REPORT INFORMATION
  Report Type: Report from Study
  Country: GB (occurrence: GB)
  Receive Date: 20110314
  Receipt Date: 20130812
  Transmission Date: 20140515
  Serious: Yes (Death)
  Sender: FDA-Public Use
  Company Number: GB-ROCHE-764228

PATIENT
  Sex: Female
  Weight: 99.5 kg

DRUGS (6)
  1. OSELTAMIVIR [Suspect]
     Indication: H1N1 INFLUENZA
     Route: 042
     Dates: start: 20110127, end: 20110129
  2. OSELTAMIVIR [Suspect]
     Indication: H1N1 INFLUENZA
     Route: 050
     Dates: start: 20110105, end: 20110113
  3. OSELTAMIVIR [Suspect]
     Route: 050
     Dates: start: 20110118, end: 20110127
  4. SALBUTAMOL [Concomitant]
     Dosage: NEBULISER
     Route: 065
     Dates: start: 20110105, end: 20110129
  5. OMEPRAZOLE [Concomitant]
     Route: 042
     Dates: start: 20110105, end: 20110129
  6. IPRATROPIUM [Concomitant]
     Dosage: NEBULISER
     Route: 065
     Dates: start: 20110105, end: 20110129

REACTIONS (1)
  - Multi-organ failure [Fatal]
